FAERS Safety Report 5088643-6 (Version None)
Quarter: 2006Q3

REPORT INFORMATION
  Report Type: 
  Country: None (occurrence: None)
  Receive Date: 20060825
  Receipt Date: 20060816
  Transmission Date: 20061208
  Serious: Yes (Disabling, Other)
  Sender: FDA-Public Use
  Company Number: GB-BRISTOL-MYERS SQUIBB COMPANY-13477799

PATIENT
  Sex: Male

DRUGS (2)
  1. ARIPIPRAZOLE [Suspect]
     Route: 048
     Dates: start: 20060406, end: 20060413
  2. OLANZAPINE [Concomitant]
     Route: 048
     Dates: start: 20051114

REACTIONS (2)
  - CONVULSION [None]
  - SYNCOPE [None]
